FAERS Safety Report 15389008 (Version 2)
Quarter: 2018Q3

REPORT INFORMATION
  Report Type: Spontaneous
  Country: IE (occurrence: IE)
  Receive Date: 20180917
  Receipt Date: 20180926
  Transmission Date: 20181010
  Serious: Yes (Other)
  Sender: FDA-Public Use
  Company Number: IE-BEH-2018092967

PATIENT
  Sex: Female

DRUGS (1)
  1. RHOPHYLAC [Suspect]
     Active Substance: HUMAN RHO(D) IMMUNE GLOBULIN
     Indication: PROPHYLAXIS
     Route: 065

REACTIONS (6)
  - Abortion spontaneous [Unknown]
  - Dizziness [Unknown]
  - Injection site pruritus [Unknown]
  - Nausea [Unknown]
  - Injection site erythema [Unknown]
  - Vomiting [Unknown]

NARRATIVE: CASE EVENT DATE: 2010
